FAERS Safety Report 15339085 (Version 3)
Quarter: 2019Q2

REPORT INFORMATION
  Report Type: Spontaneous
  Country: US (occurrence: US)
  Receive Date: 20180831
  Receipt Date: 20190412
  Transmission Date: 20190711
  Serious: Yes (Other)
  Sender: FDA-Public Use
  Company Number: US-PFIZER INC-2018348591

PATIENT
  Age: 90 Year
  Sex: Female
  Weight: 86.17 kg

DRUGS (4)
  1. IBRANCE [Suspect]
     Active Substance: PALBOCICLIB
     Indication: BREAST CANCER FEMALE
     Dosage: 100 MG, UNK
  2. IBRANCE [Suspect]
     Active Substance: PALBOCICLIB
     Dosage: 75 MG, CYCLIC (DAYS 1-14 OF 28 DAYS)
     Route: 048
     Dates: start: 201712
  3. IBRANCE [Suspect]
     Active Substance: PALBOCICLIB
     Dosage: 75 MG, CYCLIC (DAY 1-7 EVERY 21 DAYS)
     Route: 048
     Dates: start: 201712
  4. IBRANCE [Suspect]
     Active Substance: PALBOCICLIB
     Dosage: 75 MG, CYCLIC (DAY1-14 Q 28 DAYS)
     Route: 048
     Dates: start: 201712

REACTIONS (13)
  - Insomnia [Recovering/Resolving]
  - Dementia [Recovering/Resolving]
  - Musculoskeletal pain [Unknown]
  - Dysuria [Unknown]
  - Pulmonary oedema [Unknown]
  - Micturition urgency [Unknown]
  - Constipation [Unknown]
  - Neutropenia [Recovering/Resolving]
  - Pain in extremity [Unknown]
  - Dyspnoea [Unknown]
  - Diarrhoea [Unknown]
  - Restlessness [Unknown]
  - Chest pain [Unknown]
